FAERS Safety Report 23625937 (Version 1)
Quarter: 2024Q1

REPORT INFORMATION
  Report Type: Report from Study
  Country: AU (occurrence: AU)
  Receive Date: 20240313
  Receipt Date: 20240313
  Transmission Date: 20240410
  Serious: Yes (Death)
  Sender: FDA-Public Use
  Company Number: AU-JNJFOC-20221147903

PATIENT
  Age: 75 Year
  Sex: Male
  Weight: 75 kg

DRUGS (2)
  1. DARZALEX [Suspect]
     Active Substance: DARATUMUMAB
     Indication: Plasma cell myeloma
     Dosage: DATE OF LAST DOSE :: 18-NOV-2022?DATE OF NEXT DOSE :: 02-DEC-2022?LAST ADMINISTRATION DATE:08-MAR-20
     Route: 058
  2. DARZALEX [Suspect]
     Active Substance: DARATUMUMAB
     Dosage: DATE OF LAST DOSE :: 27-JAN-2023?DATE OF NEXT DOSE :: 24-FEB-2023
     Route: 058

REACTIONS (2)
  - Death [Fatal]
  - Inappropriate schedule of product administration [Unknown]

NARRATIVE: CASE EVENT DATE: 20221118
